FAERS Safety Report 7183484 (Version 2)
Quarter: 2013Q4

REPORT INFORMATION
  Report Type: Spontaneous
  Country: US (occurrence: US)
  Receive Date: 20091120
  Receipt Date: 20131202
  Transmission Date: 20140711
  Serious: Yes (Other)
  Sender: FDA-Public Use
  Company Number: US-AMGEN-QUU318987

PATIENT
  Age: 51 Year
  Sex: Male
  Weight: 102.1 kg

DRUGS (2)
  1. ENBREL [Suspect]
     Indication: PSORIASIS
     Dosage: 50 MG, QWK
     Route: 058
     Dates: start: 20080608
  2. METHOTREXATE [Suspect]
     Indication: PRODUCT USED FOR UNKNOWN INDICATION
     Dosage: UNK
     Route: 065

REACTIONS (6)
  - Surgical failure [Recovered/Resolved]
  - Depression [Recovered/Resolved]
  - Anal fistula [Recovered/Resolved]
  - Nasal septum deviation [Recovered/Resolved]
  - Bone disorder [Recovered/Resolved]
  - Psoriasis [Not Recovered/Not Resolved]
